FAERS Safety Report 9731893 (Version 1)
Quarter: 2013Q4

REPORT INFORMATION
  Report Type: Report from Study
  Country: MX (occurrence: MX)
  Receive Date: 20131204
  Receipt Date: 20131204
  Transmission Date: 20140711
  Serious: Yes (Death)
  Sender: FDA-Public Use
  Company Number: PHHY2013MX140862

PATIENT
  Age: 78 Year
  Sex: Female

DRUGS (1)
  1. CO-DIOVAN [Suspect]
     Dosage: (160 MG VALS AND 25 MG HYDR)
     Route: 048

REACTIONS (2)
  - Renal disorder [Fatal]
  - Blood disorder [Fatal]
